FAERS Safety Report 7210213-1 (Version None)
Quarter: 2011Q1

REPORT INFORMATION
  Report Type: 
  Country: None (occurrence: None)
  Receive Date: 20110105
  Receipt Date: 20101230
  Transmission Date: 20110831
  Serious: Yes (Hospitalization, Other)
  Sender: FDA-Public Use
  Company Number: GB-JNJFOC-20101201826

PATIENT
  Age: 13 Year
  Sex: Male
  Weight: 31.2 kg

DRUGS (6)
  1. RISPERIDONE [Suspect]
     Indication: ATTENTION DEFICIT/HYPERACTIVITY DISORDER
     Route: 048
  2. EQUASYM [Suspect]
     Indication: AUTISM
     Route: 048
  3. PRED FORTE [Suspect]
     Indication: PRODUCT USED FOR UNKNOWN INDICATION
     Route: 047
  4. VEXOL [Suspect]
     Indication: PRODUCT USED FOR UNKNOWN INDICATION
     Route: 047
  5. EQUASYM [Suspect]
     Indication: ATTENTION DEFICIT/HYPERACTIVITY DISORDER
     Route: 048
  6. RISPERIDONE [Suspect]
     Indication: AUTISM
     Route: 048

REACTIONS (11)
  - VISUAL IMPAIRMENT [None]
  - CSF PRESSURE INCREASED [None]
  - OFF LABEL USE [None]
  - BENIGN INTRACRANIAL HYPERTENSION [None]
  - EYE PRURITUS [None]
  - PAPILLOEDEMA [None]
  - EYE PAIN [None]
  - EYELID OEDEMA [None]
  - CONJUNCTIVITIS [None]
  - OCULAR HYPERAEMIA [None]
  - EYE SWELLING [None]
